FAERS Safety Report 7795136-1 (Version None)
Quarter: 2011Q4

REPORT INFORMATION
  Report Type: 
  Country: None (occurrence: None)
  Receive Date: 20111004
  Receipt Date: 20110926
  Transmission Date: 20120403
  Serious: Yes (Hospitalization, Other)
  Sender: FDA-Public Use
  Company Number: IT-JNJFOC-20110910843

PATIENT
  Sex: Female

DRUGS (1)
  1. VERMOX [Suspect]
     Indication: GASTROINTESTINAL INFECTION
     Route: 048
     Dates: start: 20110708, end: 20110709

REACTIONS (2)
  - SOMNOLENCE [None]
  - DIET REFUSAL [None]
